FAERS Safety Report 9322220 (Version 1)
Quarter: 2013Q2

REPORT INFORMATION
  Report Type: Spontaneous
  Country: BR (occurrence: BR)
  Receive Date: 20130531
  Receipt Date: 20130531
  Transmission Date: 20140414
  Serious: Yes (Death, Hospitalization)
  Sender: FDA-Public Use
  Company Number: BR-GLAXOSMITHKLINE-A1024928A

PATIENT
  Age: 77 Year
  Sex: Male
  Weight: 78 kg

DRUGS (3)
  1. SERETIDE [Suspect]
     Indication: DYSPNOEA
     Dosage: 1PUFF PER DAY
     Route: 055
     Dates: start: 2005, end: 20130505
  2. LOSARTAN POTASSIUM [Concomitant]
  3. SIMVASTATINE [Concomitant]

REACTIONS (8)
  - Septic shock [Fatal]
  - Pneumonia [Fatal]
  - Apnoea [Fatal]
  - Endotracheal intubation [Fatal]
  - Dyspnoea [Fatal]
  - Cystitis [Fatal]
  - Cough [Fatal]
  - Blood pressure increased [Fatal]
